FAERS Safety Report 23523089 (Version 2)
Quarter: 2024Q1

REPORT INFORMATION
  Report Type: Other
  Country: JP (occurrence: JP)
  Receive Date: 20240214
  Receipt Date: 20240221
  Transmission Date: 20240409
  Serious: Yes (Hospitalization, Other)
  Sender: FDA-Public Use
  Company Number: JP-PHATHOM PHARMACEUTICALS INC.-2024PHT00049

PATIENT
  Age: 86 Year
  Sex: Female
  Weight: 49.7 kg

DRUGS (12)
  1. VONOPRAZAN FUMARATE [Suspect]
     Active Substance: VONOPRAZAN FUMARATE
     Indication: Prophylaxis against gastrointestinal ulcer
     Dosage: 10 MG, 1X/DAY
     Route: 048
     Dates: start: 20221001, end: 20240124
  2. DENOSUMAB [Suspect]
     Active Substance: DENOSUMAB
     Indication: Product used for unknown indication
     Dosage: UNK
     Route: 058
     Dates: start: 20190121
  3. METHENOLONE [Concomitant]
     Active Substance: METHENOLONE
     Dosage: UNK
  4. TRAMADOL HYDROCHLORIDE OD [Concomitant]
  5. AMLODIPINE BESYLATE\AZILSARTAN [Concomitant]
     Active Substance: AMLODIPINE BESYLATE\AZILSARTAN
  6. CARVEDILOL [Concomitant]
     Active Substance: CARVEDILOL
  7. CALONAL [Concomitant]
     Active Substance: ACETAMINOPHEN
  8. LOXOPROFEN SODIUM [Concomitant]
     Active Substance: LOXOPROFEN SODIUM
  9. CEFTRIAXONE SODIUM [Concomitant]
     Active Substance: CEFTRIAXONE SODIUM
     Dosage: UNK
     Dates: start: 20240122, end: 20240124
  10. MEROPENEM [Concomitant]
     Active Substance: MEROPENEM
     Dosage: UNK
     Dates: start: 20240124
  11. FASLODEX [Concomitant]
     Active Substance: FULVESTRANT
     Dosage: UNK
     Dates: start: 20220520
  12. LOXOPROFEN SODIUM [Concomitant]
     Active Substance: LOXOPROFEN SODIUM
     Dosage: UNK

REACTIONS (4)
  - Pyelonephritis [Unknown]
  - Hypomagnesaemia [Recovered/Resolved]
  - Hypocalcaemia [Recovered/Resolved]
  - Urinary tract infection [Unknown]

NARRATIVE: CASE EVENT DATE: 20240122
